FAERS Safety Report 17041018 (Version 1)
Quarter: 2019Q4

REPORT INFORMATION
  Report Type: Spontaneous
  Country: US (occurrence: US)
  Receive Date: 20191118
  Receipt Date: 20191118
  Transmission Date: 20200122
  Serious: Yes (Other)
  Sender: FDA-Public Use
  Company Number: US-ALKEM LABORATORIES LIMITED-US-ALKEM-2019-09091

PATIENT
  Age: 27 Year
  Sex: Female

DRUGS (1)
  1. ISONIAZID. [Suspect]
     Active Substance: ISONIAZID
     Indication: ANTIBIOTIC PROPHYLAXIS
     Dosage: 300 MILLIGRAM, QD
     Route: 048

REACTIONS (3)
  - Drug resistance [Unknown]
  - Exposure during pregnancy [Unknown]
  - Drug ineffective [Unknown]
